FAERS Safety Report 7238077-0 (Version None)
Quarter: 2011Q1

REPORT INFORMATION
  Report Type: 
  Country: None (occurrence: None)
  Receive Date: 20110121
  Receipt Date: 20110114
  Transmission Date: 20110831
  Serious: Yes (Hospitalization)
  Sender: FDA-Public Use
  Company Number: B0693700A

PATIENT
  Sex: Male

DRUGS (8)
  1. SOLUPRED [Concomitant]
     Route: 065
     Dates: start: 20101110
  2. NASACORT [Concomitant]
     Route: 065
     Dates: start: 20101110
  3. INNOHEP [Concomitant]
     Dosage: .9ML SINGLE DOSE
     Route: 058
     Dates: start: 20101210, end: 20101228
  4. AUGMENTIN [Suspect]
     Indication: BRONCHITIS
     Route: 048
     Dates: start: 20101220, end: 20101228
  5. TRUVADA [Suspect]
     Indication: HIV INFECTION
     Dosage: 1TAB PER DAY
     Route: 048
     Dates: start: 20101214, end: 20101221
  6. CRESTOR [Concomitant]
     Route: 048
  7. LASIX [Concomitant]
     Route: 065
     Dates: start: 20101201
  8. FORTZAAR [Concomitant]
     Dosage: 1UNIT PER DAY
     Route: 048
     Dates: start: 20060101, end: 20101228

REACTIONS (1)
  - RENAL FAILURE [None]
